FAERS Safety Report 20111306 (Version 1)
Quarter: 2021Q4

REPORT INFORMATION
  Report Type: Spontaneous
  Country: US (occurrence: US)
  Receive Date: 20211125
  Receipt Date: 20211125
  Transmission Date: 20220303
  Serious: Yes (Other)
  Sender: FDA-Public Use
  Company Number: US-drreddys-LIT/USA/21/0144039

PATIENT
  Sex: Female

DRUGS (11)
  1. DOBUTAMINE HYDROCHLORIDE [Suspect]
     Active Substance: DOBUTAMINE HYDROCHLORIDE
     Indication: Circulatory collapse
     Dosage: 10 MICROGRAM/KG/MIN
  2. EPINEPHRINE [Suspect]
     Active Substance: EPINEPHRINE
     Indication: Circulatory collapse
     Dosage: 0.2 MICROGRAM/KG/MIN
  3. VASOPRESSIN [Suspect]
     Active Substance: VASOPRESSIN
     Indication: Circulatory collapse
     Dosage: 0.04 U/MIN
  4. NOREPINEPHRINE [Suspect]
     Active Substance: NOREPINEPHRINE
     Indication: Circulatory collapse
     Dosage: 0.3 MICROGRAM/KG/MIN
  5. LIDOCAINE [Concomitant]
     Active Substance: LIDOCAINE
     Indication: Local anaesthesia
     Dosage: 1 PERCENT 2 ML
     Route: 061
  6. LIDOCAINE [Concomitant]
     Active Substance: LIDOCAINE
     Dosage: 1 PERCENT 3 ML
     Route: 008
  7. LIDOCAINE [Concomitant]
     Active Substance: LIDOCAINE
     Dosage: 1 PERCENT 20 ML
  8. IOHEXOL [Concomitant]
     Active Substance: IOHEXOL
     Indication: Product used for unknown indication
  9. EPINEPHRINE [Concomitant]
     Active Substance: EPINEPHRINE
     Indication: Product used for unknown indication
     Route: 008
  10. BUPIVACAINE [Concomitant]
     Active Substance: BUPIVACAINE
     Indication: Local anaesthesia
     Dosage: 0.25 PERCENT 8 ML
     Route: 008
  11. epidural [Concomitant]

REACTIONS (1)
  - Drug ineffective [Unknown]
